FAERS Safety Report 7863094-7 (Version None)
Quarter: 2011Q4

REPORT INFORMATION
  Report Type: 
  Country: None (occurrence: None)
  Receive Date: 20111027
  Receipt Date: 20101124
  Transmission Date: 20120403
  Serious: No
  Sender: FDA-Public Use
  Company Number: US-AMGEN-USASP2010006501

PATIENT
  Age: 40 Year
  Sex: Female

DRUGS (2)
  1. ENBREL [Suspect]
     Indication: RHEUMATOID ARTHRITIS
     Dosage: 50 MG, QWK
     Dates: start: 20101012
  2. TREXALL [Concomitant]
     Dosage: 5 MG, QWK
     Dates: start: 20080101

REACTIONS (2)
  - NASOPHARYNGITIS [None]
  - BRONCHITIS [None]
